FAERS Safety Report 12783600 (Version 1)
Quarter: 2016Q3

REPORT INFORMATION
  Report Type: Spontaneous
  Country: IT (occurrence: IT)
  Receive Date: 20160927
  Receipt Date: 20160927
  Transmission Date: 20161109
  Serious: Yes (Other)
  Sender: FDA-Public Use
  Company Number: IT-BAYER-2016-186089

PATIENT
  Age: 60 Year
  Sex: Male

DRUGS (5)
  1. TERIZIDONE [Suspect]
     Active Substance: TERIZIDONE
     Indication: RENAL TUBERCULOSIS
     Dosage: DAILY DOSE 500 MG
     Route: 048
     Dates: start: 20090427, end: 20090721
  2. ETAPIAM [Suspect]
     Active Substance: ETHAMBUTOL HYDROCHLORIDE
     Indication: RENAL TUBERCULOSIS
     Dosage: DAILY DOSE 1200 MG
     Route: 048
     Dates: start: 20090427, end: 20090721
  3. BENADON [Concomitant]
     Active Substance: PYRIDOXINE HYDROCHLORIDE
     Dosage: DAILY DOSE 150 MG
     Route: 048
     Dates: start: 20090427, end: 20090721
  4. ETHIONAMIDE [Suspect]
     Active Substance: ETHIONAMIDE
     Indication: RENAL TUBERCULOSIS
     Dosage: DAILY DOSE 500 MG
     Dates: start: 20090427, end: 20090721
  5. AVALOX [Suspect]
     Active Substance: MOXIFLOXACIN HYDROCHLORIDE
     Indication: RENAL TUBERCULOSIS
     Dosage: DAILY DOSE 400 MG
     Route: 048
     Dates: start: 20090427, end: 20090721

REACTIONS (2)
  - Asthenia [Recovering/Resolving]
  - Thyroiditis [Recovering/Resolving]

NARRATIVE: CASE EVENT DATE: 20090721
